FAERS Safety Report 7620038-0 (Version None)
Quarter: 2011Q3

REPORT INFORMATION
  Report Type: 
  Country: None (occurrence: None)
  Receive Date: 20110719
  Receipt Date: 20110715
  Transmission Date: 20111222
  Serious: No
  Sender: FDA-Public Use
  Company Number: US-PFIZER INC-2011160857

PATIENT

DRUGS (2)
  1. GEODON [Suspect]
     Indication: PSYCHOTIC DISORDER
  2. GEODON [Suspect]
     Indication: BIPOLAR DISORDER
     Dosage: UNK

REACTIONS (1)
  - SKIN DISCOLOURATION [None]
